FAERS Safety Report 15821678 (Version 1)
Quarter: 2019Q1

REPORT INFORMATION
  Report Type: Spontaneous
  Country: US (occurrence: US)
  Receive Date: 20190113
  Receipt Date: 20190113
  Transmission Date: 20190417
  Serious: Yes (Death)
  Sender: FDA-Public Use
  Company Number: None

PATIENT
  Age: 5 Year
  Sex: Female

DRUGS (2)
  1. SPRYCEL [Suspect]
     Active Substance: DASATINIB
     Indication: BRAIN NEOPLASM MALIGNANT
     Route: 048
     Dates: start: 20180912, end: 20181226
  2. AFINITOR 2.5 MG [Concomitant]
     Dates: start: 20181025, end: 20181226

REACTIONS (1)
  - Death [None]

NARRATIVE: CASE EVENT DATE: 20181226
